FAERS Safety Report 8192959-4 (Version None)
Quarter: 2012Q1

REPORT INFORMATION
  Report Type: 
  Country: None (occurrence: None)
  Receive Date: 20120308
  Receipt Date: 20120228
  Transmission Date: 20120608
  Serious: Yes (Hospitalization)
  Sender: FDA-Public Use
  Company Number: US-JNJFOC-20120300255

PATIENT
  Age: 55 Year
  Sex: Female
  Weight: 84.37 kg

DRUGS (14)
  1. LORTAB [Suspect]
     Indication: ANALGESIC THERAPY
  2. OTHER DRUGS (UNSPECIFIED) [Concomitant]
     Route: 065
  3. OTHER DRUGS (UNSPECIFIED) [Concomitant]
     Indication: GASTRIC DISORDER
     Route: 065
  4. ACETAMINOPHEN [Suspect]
     Indication: BREAKTHROUGH PAIN
     Route: 048
     Dates: end: 20111031
  5. POTASSIUM CHLORIDE [Concomitant]
     Indication: MINERAL SUPPLEMENTATION
     Route: 065
  6. EXTRA STRENGTH TYLENOL [Suspect]
     Indication: BREAKTHROUGH PAIN
     Route: 048
     Dates: end: 20111031
  7. LASIX [Concomitant]
     Indication: DIURETIC THERAPY
     Route: 065
  8. FLEXERIL [Concomitant]
     Indication: BACK DISORDER
     Route: 065
  9. METOPROLOL SUCCINATE [Concomitant]
     Indication: HYPERTENSION
     Route: 065
  10. ANTI-HYPERTENSIVE [Concomitant]
     Indication: BLOOD PRESSURE
     Route: 065
  11. OTHER DRUGS (UNSPECIFIED) [Concomitant]
     Indication: PRODUCT USED FOR UNKNOWN INDICATION
     Route: 065
  12. EXTRA STRENGTH TYLENOL [Suspect]
     Route: 048
  13. ACETAMINOPHEN [Suspect]
     Route: 048
  14. OTHER DRUGS (UNSPECIFIED) [Concomitant]
     Route: 065

REACTIONS (2)
  - SWELLING [None]
  - TOXICITY TO VARIOUS AGENTS [None]
